FAERS Safety Report 7931301-8 (Version None)
Quarter: 2011Q4

REPORT INFORMATION
  Report Type: 
  Country: None (occurrence: None)
  Receive Date: 20111121
  Receipt Date: 20111110
  Transmission Date: 20120403
  Serious: Yes (Hospitalization, Disabling, Other)
  Sender: FDA-Public Use
  Company Number: US-BAYER-2010-009199

PATIENT
  Age: 47 Year
  Sex: Female
  Weight: 53.515 kg

DRUGS (15)
  1. ASCORBIC ACID [Concomitant]
     Dosage: UNK
     Dates: start: 20060201
  2. ZYMAR [Concomitant]
  3. DROSPIRENONE AND ETHINYL ESTRADIOL [Suspect]
     Indication: CONTRACEPTION
     Dosage: UNK
     Dates: start: 20021001, end: 20090501
  4. FLAXSEED OIL [Concomitant]
  5. PROPRANOLOL [Concomitant]
  6. IMITREX [Concomitant]
     Dosage: UNK
     Dates: start: 20070501, end: 20090501
  7. TRAMADOL HCL [Concomitant]
  8. YASMIN [Suspect]
     Indication: CONTRACEPTION
     Dosage: UNK
     Dates: start: 20021001, end: 20090501
  9. OTHER ANALGESICS AND ANTIPYRETICS [Concomitant]
  10. PEPCID AC [Concomitant]
  11. ACULAR [Concomitant]
  12. FROVA [Concomitant]
     Dosage: UNK
     Dates: start: 20070501, end: 20090501
  13. CENTRUM [Concomitant]
  14. CYCLOBENZAPRINE [Concomitant]
  15. FLUOROMETHOLONE [Concomitant]

REACTIONS (4)
  - PAIN [None]
  - DEEP VEIN THROMBOSIS [None]
  - MULTIPLE MYELOMA [None]
  - INJURY [None]
